FAERS Safety Report 16721648 (Version 3)
Quarter: 2019Q3

REPORT INFORMATION
  Report Type: Spontaneous
  Country: FR (occurrence: FR)
  Receive Date: 20190820
  Receipt Date: 20190923
  Transmission Date: 20191005
  Serious: Yes (Other)
  Sender: FDA-Public Use
  Company Number: FR-MYLANLABS-2019M1076759

PATIENT

DRUGS (1)
  1. RISPERIDONE 3 MG ORODISPERSIBLE TABLETS [Suspect]
     Active Substance: RISPERIDONE
     Indication: PRODUCT USED FOR UNKNOWN INDICATION
     Dosage: 3 MILLIGRAM, QD

REACTIONS (4)
  - Delusional disorder, persecutory type [Unknown]
  - Suicidal ideation [Unknown]
  - Paranoia [Unknown]
  - Drug hypersensitivity [Unknown]
